FAERS Safety Report 9902808 (Version 2)
Quarter: 2014Q2

REPORT INFORMATION
  Report Type: Report from Study
  Country: BR (occurrence: BR)
  Receive Date: 20140206
  Receipt Date: 20140412
  Transmission Date: 20141212
  Serious: Yes (Death, Other)
  Sender: FDA-Public Use
  Company Number: PHHY2014BR014423

PATIENT
  Sex: Female
  Weight: 40 kg

DRUGS (2)
  1. ACLASTA [Suspect]
     Indication: OSTEOPOROSIS
     Dosage: 5 MG, UNK
     Route: 042
     Dates: start: 2013
  2. DEPURA [Concomitant]
     Indication: HYPOVITAMINOSIS
     Dosage: UNK UKN, UNK
     Dates: start: 2011, end: 2013

REACTIONS (1)
  - Respiratory failure [Fatal]
